FAERS Safety Report 6085116-9 (Version None)
Quarter: 2009Q1

REPORT INFORMATION
  Report Type: 
  Country: None (occurrence: None)
  Receive Date: 20090220
  Receipt Date: 20090211
  Transmission Date: 20090719
  Serious: Yes (Hospitalization)
  Sender: FDA-Public Use
  Company Number: PL-CELGENE-129-C5013-08111516

PATIENT
  Sex: Male
  Weight: 80 kg

DRUGS (7)
  1. BLINDED CC-5013 [Suspect]
     Indication: MULTIPLE MYELOMA
     Route: 048
     Dates: start: 20080723, end: 20081126
  2. BLINDED CC-5013 [Suspect]
     Route: 048
     Dates: start: 20081222
  3. MELPHALAN [Suspect]
     Indication: MULTIPLE MYELOMA
     Route: 065
     Dates: start: 20080723, end: 20081115
  4. PREDNISONE TAB [Suspect]
     Indication: MULTIPLE MYELOMA
     Route: 065
     Dates: start: 20080723, end: 20081115
  5. ENALAPRIL [Concomitant]
     Indication: HYPERTENSION
     Route: 048
     Dates: start: 20000101
  6. ACETYLSALICYLIC ACID SRT [Concomitant]
     Route: 048
     Dates: start: 20080723
  7. NADROPARINE [Concomitant]
     Route: 058

REACTIONS (1)
  - MYOCARDIAL ISCHAEMIA [None]
